FAERS Safety Report 6783534-4 (Version None)
Quarter: 2010Q2

REPORT INFORMATION
  Report Type: 
  Country: None (occurrence: None)
  Receive Date: 20100618
  Receipt Date: 20100603
  Transmission Date: 20101027
  Serious: Yes (Other)
  Sender: FDA-Public Use
  Company Number: 2010US001897

PATIENT
  Sex: Female

DRUGS (1)
  1. PROTOPIC [Suspect]
     Indication: DERMATITIS ATOPIC
     Dosage: UNK, TOPICAL
     Route: 061

REACTIONS (1)
  - LIP SWELLING [None]
